FAERS Safety Report 4367880-X (Version None)
Quarter: 2004Q2

REPORT INFORMATION
  Report Type: 
  Country: None (occurrence: None)
  Receive Date: 20040601
  Receipt Date: 20040601
  Transmission Date: 20050107
  Serious: Yes (Other)
  Sender: FDA-Public Use
  Company Number: None

PATIENT
  Sex: Male
  Weight: 76.2043 kg

DRUGS (4)
  1. TRANXENE [Suspect]
     Indication: ANXIETY
     Dosage: 1 TAB 4 TIMES/D ORAL
     Route: 048
     Dates: start: 20040518, end: 20040526
  2. TRANXENE [Suspect]
     Indication: PROSTATITIS
     Dosage: 1 TAB 4 TIMES/D ORAL
     Route: 048
     Dates: start: 20040518, end: 20040526
  3. TRANXENE [Suspect]
     Indication: ANXIETY
     Dosage: 1 TAB 4 TIMES/D ORAL
     Route: 048
     Dates: start: 19850501, end: 20040530
  4. TRANXENE [Suspect]
     Indication: PROSTATITIS
     Dosage: 1 TAB 4 TIMES/D ORAL
     Route: 048
     Dates: start: 19850501, end: 20040530

REACTIONS (7)
  - DIZZINESS [None]
  - DRUG INEFFECTIVE [None]
  - FLUSHING [None]
  - HEADACHE [None]
  - NAUSEA [None]
  - PHARMACEUTICAL PRODUCT COMPLAINT [None]
  - PROSTATITIS [None]
